FAERS Safety Report 7532179-7 (Version None)
Quarter: 2011Q2

REPORT INFORMATION
  Report Type: 
  Country: None (occurrence: None)
  Receive Date: 20110608
  Receipt Date: 20110520
  Transmission Date: 20111010
  Serious: No
  Sender: FDA-Public Use
  Company Number: US-B.I. PHARMACEUTICALS,INC./RIDGEFIELD-2011-BP-13582BP

PATIENT
  Sex: Female

DRUGS (9)
  1. TYLENOL W/ CODEINE [Concomitant]
     Indication: PAIN
  2. PRADAXA [Suspect]
     Indication: ATRIAL FIBRILLATION
     Dosage: 150 MG
     Route: 048
     Dates: start: 20110516
  3. VITAMIN D [Concomitant]
     Indication: SUPPLEMENTATION THERAPY
  4. PERCOCET [Concomitant]
     Indication: PAIN
  5. NITROGLYCERIN [Concomitant]
     Indication: ANGINA PECTORIS
     Route: 060
  6. METOPROLOL [Concomitant]
     Indication: HYPERTENSION
  7. FUROSEMIDE [Concomitant]
     Indication: HYPERTENSION
  8. MIRTAZAPINE [Concomitant]
     Indication: PAIN
  9. PRILOSEC [Concomitant]
     Indication: GASTROOESOPHAGEAL REFLUX DISEASE

REACTIONS (1)
  - CHROMATURIA [None]
